FAERS Safety Report 4364643-6 (Version None)
Quarter: 2004Q2

REPORT INFORMATION
  Report Type: 
  Country: None (occurrence: None)
  Receive Date: 20040521
  Receipt Date: 20040429
  Transmission Date: 20050107
  Serious: Yes (Other)
  Sender: FDA-Public Use
  Company Number: US_0404102154

PATIENT
  Age: 84 Year
  Sex: Female

DRUGS (10)
  1. EVISTA [Suspect]
     Indication: OSTEOPOROSIS
     Dosage: 60 MG/ 1 DAY
     Dates: end: 20040401
  2. HORMONE REPLACEMENT THERAPY [Concomitant]
  3. METHOTREXATE [Concomitant]
  4. AZULFIDINE (SULFASALIZINE) [Concomitant]
  5. CELEBREX [Concomitant]
  6. TRAMADOL HCL [Concomitant]
  7. NORVASC [Concomitant]
  8. TIMOPTIC [Concomitant]
  9. SYNTHROID [Concomitant]
  10. DETROL LA (TOLTERODINE L-TARTRATE) [Concomitant]

REACTIONS (2)
  - HUMERUS FRACTURE [None]
  - PELVIC FRACTURE [None]
